FAERS Safety Report 26170733 (Version 1)
Quarter: 2025Q4

REPORT INFORMATION
  Report Type: Spontaneous
  Country: US (occurrence: US)
  Receive Date: 20251217
  Receipt Date: 20251217
  Transmission Date: 20260118
  Serious: Yes (Other)
  Sender: MALLINCKRODT
  Company Number: US-MALLINCKRODT-MNK202507957

PATIENT
  Age: 55 Year
  Sex: Male

DRUGS (4)
  1. TERLIPRESSIN [Suspect]
     Active Substance: TERLIPRESSIN
     Indication: Hepatorenal syndrome
     Route: 042
  2. ALBUMIN HUMAN [Concomitant]
     Active Substance: ALBUMIN HUMAN
     Indication: Hepatorenal syndrome
     Dosage: UNKNOWN
     Route: 042
  3. MIDODRINE [Concomitant]
     Active Substance: MIDODRINE
     Indication: Hepatorenal syndrome
     Dosage: UNKNOWN
  4. OCTREOTIDE [Concomitant]
     Active Substance: OCTREOTIDE
     Indication: Hepatorenal syndrome
     Dosage: UNKNOWN

REACTIONS (3)
  - Hepatorenal syndrome [Unknown]
  - Condition aggravated [Unknown]
  - Skin necrosis [Recovering/Resolving]
